FAERS Safety Report 7492413-9 (Version None)
Quarter: 2011Q2

REPORT INFORMATION
  Report Type: 
  Country: None (occurrence: None)
  Receive Date: 20110519
  Receipt Date: 20110509
  Transmission Date: 20111010
  Serious: Yes (Other)
  Sender: FDA-Public Use
  Company Number: US-CELGENEUS-163-20785-11051132

PATIENT
  Sex: Female

DRUGS (7)
  1. ZOLPIDEM [Concomitant]
     Route: 065
  2. THALOMID [Suspect]
     Dosage: 50-100 MG
     Route: 048
     Dates: start: 20081101
  3. OXYCONTIN [Concomitant]
     Dosage: 80 MILLIGRAM
     Route: 065
  4. THALOMID [Suspect]
     Dosage: 200 MILLIGRAM
     Route: 048
     Dates: start: 20110201, end: 20110421
  5. THALOMID [Suspect]
     Indication: MULTIPLE MYELOMA
     Dosage: 200 MILLIGRAM
     Route: 048
     Dates: start: 20070301
  6. OXYCODONE HCL [Concomitant]
     Dosage: 10 MILLIGRAM
     Route: 065
  7. DEXAMETHASONE [Concomitant]
     Route: 065

REACTIONS (2)
  - OSTEONECROSIS [None]
  - ANAEMIA [None]
